FAERS Safety Report 8106338-9 (Version None)
Quarter: 2012Q1

REPORT INFORMATION
  Report Type: 
  Country: None (occurrence: None)
  Receive Date: 20120202
  Receipt Date: 20120126
  Transmission Date: 20120608
  Serious: Yes (Hospitalization)
  Sender: FDA-Public Use
  Company Number: US-JNJFOC-20120112431

PATIENT
  Sex: Male
  Weight: 102.06 kg

DRUGS (7)
  1. LEVAQUIN [Suspect]
     Indication: PNEUMONIA
     Route: 065
     Dates: start: 20100310, end: 20100320
  2. FLEXERIL [Concomitant]
     Indication: MUSCLE RELAXANT THERAPY
     Route: 048
     Dates: start: 20070101
  3. UNKNOWN MEDICATION [Concomitant]
     Indication: CONSTIPATION
     Route: 048
     Dates: start: 20070101
  4. PERCOCET [Concomitant]
     Indication: PAIN
     Route: 048
     Dates: start: 20010101
  5. LUNESTA [Concomitant]
     Indication: HYPERSOMNIA
     Route: 048
     Dates: start: 20070101
  6. HYOSCYAMINE [Concomitant]
     Indication: HYPERHIDROSIS
     Route: 048
     Dates: start: 20070101
  7. AVINZA [Concomitant]
     Indication: ACCIDENT
     Route: 048
     Dates: start: 20040101

REACTIONS (13)
  - FALL [None]
  - DYSPNOEA [None]
  - ECCHYMOSIS [None]
  - PAIN [None]
  - TENDON DISORDER [None]
  - MUSCLE RUPTURE [None]
  - HYPERHIDROSIS [None]
  - TENDON RUPTURE [None]
  - GRIP STRENGTH DECREASED [None]
  - MASS [None]
  - DRUG INEFFECTIVE [None]
  - PALLOR [None]
  - HEART RATE INCREASED [None]
